FAERS Safety Report 24061674 (Version 1)
Quarter: 2024Q3

REPORT INFORMATION
  Report Type: Spontaneous
  Country: ES (occurrence: ES)
  Receive Date: 20240708
  Receipt Date: 20240708
  Transmission Date: 20241016
  Serious: Yes (Other)
  Sender: DR REDDYS
  Company Number: None

PATIENT
  Age: 50 Year
  Sex: Male

DRUGS (1)
  1. LACOSAMIDE [Suspect]
     Active Substance: LACOSAMIDE
     Indication: Status epilepticus
     Dosage: CHARACTERISTIC FOR LACOSAMIDE WITH ROUTE OF ADMINISTRATION AS INTRAVENOUS WAS DRUG NOT ADMINISTERED,
     Dates: start: 20240405, end: 20240407

REACTIONS (5)
  - Intentional product use issue [Unknown]
  - Incorrect route of product administration [Unknown]
  - Product availability issue [Unknown]
  - Drug ineffective [Unknown]
  - Seizure [Recovered/Resolved]

NARRATIVE: CASE EVENT DATE: 20240405
